FAERS Safety Report 5361499-X (Version None)
Quarter: 2007Q2

REPORT INFORMATION
  Report Type: 
  Country: None (occurrence: None)
  Receive Date: 20070530
  Receipt Date: 20070307
  Transmission Date: 20071010
  Serious: No
  Sender: FDA-Public Use
  Company Number: 2006PV027493

PATIENT
  Age: 62 Year
  Sex: Male
  Weight: 109.7705 kg

DRUGS (2)
  1. BYETTA [Suspect]
     Indication: DIABETES MELLITUS NON-INSULIN-DEPENDENT
     Dosage: 5 MCG; BID; SC
     Route: 058
     Dates: start: 20061201
  2. GLIPIZIDE [Concomitant]

REACTIONS (2)
  - INJECTION SITE IRRITATION [None]
  - WEIGHT DECREASED [None]
